FAERS Safety Report 16651269 (Version 1)
Quarter: 2019Q3

REPORT INFORMATION
  Report Type: Spontaneous
  Country: US (occurrence: US)
  Receive Date: 20190731
  Receipt Date: 20190731
  Transmission Date: 20191004
  Serious: Yes (Other)
  Sender: FDA-Public Use
  Company Number: US-PFIZER INC-2019320484

PATIENT
  Age: 36 Year
  Sex: Male

DRUGS (2)
  1. MINOCYCLINE [Concomitant]
     Active Substance: MINOCYCLINE HYDROCHLORIDE
     Indication: LYME DISEASE
     Dosage: UNK
     Route: 048
     Dates: end: 199610
  2. CEFTRIAXONE SODIUM. [Suspect]
     Active Substance: CEFTRIAXONE SODIUM
     Indication: LYME DISEASE
     Dosage: 2 G, 1X/DAY
     Route: 042
     Dates: start: 199603, end: 199610

REACTIONS (1)
  - Pseudocholelithiasis [Unknown]

NARRATIVE: CASE EVENT DATE: 199610
